FAERS Safety Report 4350016-9 (Version None)
Quarter: 2004Q2

REPORT INFORMATION
  Report Type: 
  Country: None (occurrence: None)
  Receive Date: 20040428
  Receipt Date: 20040428
  Transmission Date: 20050107
  Serious: Yes (Hospitalization)
  Sender: FDA-Public Use
  Company Number: None

PATIENT
  Age: 87 Year
  Sex: Male

DRUGS (4)
  1. GATIFLOXACIN [Suspect]
     Indication: ESCHERICHIA BACTERAEMIA
     Dosage: 400 MG DAILY
     Dates: start: 20040316, end: 20040427
  2. METRONIDAZOLE [Suspect]
     Indication: CHOLELITHIASIS
     Dosage: 500 MG Q 12 H
     Dates: start: 20040315, end: 20040327
  3. ANTACID TAB [Concomitant]
  4. DARVOCET [Concomitant]

REACTIONS (1)
  - LIVER FUNCTION TEST ABNORMAL [None]
